FAERS Safety Report 18883728 (Version 1)
Quarter: 2021Q1

REPORT INFORMATION
  Report Type: Spontaneous
  Country: US (occurrence: US)
  Receive Date: 20210211
  Receipt Date: 20210211
  Transmission Date: 20210420
  Serious: No
  Sender: FDA-Public Use
  Company Number: US-FRESENIUS MEDICAL CARE RENAL THERAPIES GROUP-FMC-2102-000169

PATIENT
  Age: 63 Year
  Sex: Male
  Weight: 91.5 kg

DRUGS (1)
  1. DELFLEX WITH DEXTROSE 1.5% LOW MAGNESIUM LOW CALCIUM [Suspect]
     Active Substance: CALCIUM CHLORIDE\DEXTROSE\MAGNESIUM CHLORIDE\SODIUM CHLORIDE\SODIUM LACTATE
     Indication: END STAGE RENAL DISEASE
     Dosage: 2500 ML FOR 4 CYCLES WITH A LAST FILL OF 2500 ML AND NO DAYTIME EXCHANGE.
     Route: 033
     Dates: start: 20150501

REACTIONS (1)
  - Diarrhoea [Unknown]
